FAERS Safety Report 23462135 (Version 2)
Quarter: 2024Q1

REPORT INFORMATION
  Report Type: Spontaneous
  Country: JP (occurrence: JP)
  Receive Date: 20240131
  Receipt Date: 20240308
  Transmission Date: 20240410
  Serious: Yes (Death)
  Sender: FDA-Public Use
  Company Number: JP-002147023-NVSJ2024JP001526

PATIENT
  Sex: Female

DRUGS (4)
  1. CYCLOSPORINE [Suspect]
     Active Substance: CYCLOSPORINE
     Indication: Aplasia pure red cell
     Dosage: UNK
     Route: 065
  2. CYCLOSPORINE [Suspect]
     Active Substance: CYCLOSPORINE
     Indication: Haemolytic anaemia
  3. PREDNISOLONE [Suspect]
     Active Substance: PREDNISOLONE
     Indication: Aplasia pure red cell
     Dosage: 40 MG/DAY (0.5 MG/KG/DAY)
     Route: 065
  4. PREDNISOLONE [Suspect]
     Active Substance: PREDNISOLONE
     Indication: Haemolytic anaemia

REACTIONS (3)
  - Child-Pugh-Turcotte score decreased [Fatal]
  - Renal impairment [Fatal]
  - Decreased activity [Fatal]
